FAERS Safety Report 9524541 (Version 6)
Quarter: 2013Q4

REPORT INFORMATION
  Report Type: Spontaneous
  Country: US (occurrence: US)
  Receive Date: 20130916
  Receipt Date: 20131031
  Transmission Date: 20140711
  Serious: No
  Sender: FDA-Public Use
  Company Number: US-PFIZER INC-2013261856

PATIENT
  Age: 67 Year
  Sex: Male
  Weight: 95 kg

DRUGS (12)
  1. SUTENT [Suspect]
     Indication: GASTROINTESTINAL STROMAL TUMOUR
     Dosage: 37.5 MG (BY TAKING 3 CAPSULES OF 12.5 MG TOGETHER), DAILY
     Route: 048
     Dates: start: 201301
  2. SUTENT [Suspect]
     Dosage: 37.5 MG, (3X12.5 MG CAPS DAILY)
     Route: 048
     Dates: start: 20130516, end: 20131022
  3. BENAZEPRIL [Concomitant]
     Indication: BLOOD PRESSURE
     Dosage: 40 MG, DAILY
     Route: 048
  4. ATENOLOL [Concomitant]
     Indication: BLOOD PRESSURE
     Dosage: 50 MG, DAILY
     Route: 048
  5. HYDROCODONE [Concomitant]
     Dosage: UNK
  6. COLESTIPOL [Concomitant]
     Indication: DIARRHOEA
     Dosage: UNK
  7. NIASPAN [Concomitant]
     Indication: BLOOD CHOLESTEROL
     Dosage: 500 MG, DAILY
     Route: 048
  8. AMLODIPINE BESILATE [Concomitant]
     Indication: BLOOD PRESSURE
     Dosage: 15 MG, DAILY
     Route: 048
  9. FENOFIBRATE [Concomitant]
     Dosage: 160 MG, DAILY
     Route: 048
  10. HYDROCHLOROTHIAZIDE [Concomitant]
     Indication: BLOOD PRESSURE
     Dosage: 25 MG, UNK
     Route: 048
  11. SIMVASTATIN [Concomitant]
     Indication: BLOOD CHOLESTEROL
     Dosage: 40 MG, DAILY
     Route: 048
  12. ASPIRIN [Concomitant]
     Dosage: 81 MG, DAILY
     Route: 048

REACTIONS (6)
  - Fatigue [Recovering/Resolving]
  - Diarrhoea [Recovering/Resolving]
  - Skin fissures [Recovering/Resolving]
  - Blood potassium decreased [Recovered/Resolved]
  - Disease progression [Unknown]
  - Gastrointestinal stromal tumour [Unknown]
